FAERS Safety Report 4283957-1 (Version None)
Quarter: 2004Q1

REPORT INFORMATION
  Report Type: 
  Country: None (occurrence: None)
  Receive Date: 20040202
  Receipt Date: 20031010
  Transmission Date: 20041129
  Serious: Yes (Life-Threatening, Hospitalization, Other)
  Sender: FDA-Public Use
  Company Number: WAES 0310USA01490

PATIENT
  Age: 75 Year
  Sex: Female
  Weight: 73 kg

DRUGS (13)
  1. PEPCID [Concomitant]
  2. FLUOROURACIL [Concomitant]
     Route: 042
     Dates: start: 20031008, end: 20031008
  3. CLARITIN [Concomitant]
  4. METHOTREXATE [Concomitant]
     Route: 042
     Dates: start: 20031008, end: 20031008
  5. TOPROL-XL [Concomitant]
  6. [THERAPY UNSPECIFIED] [Concomitant]
  7. ALLOPURINOL [Concomitant]
  8. EMEND [Suspect]
     Indication: PROPHYLAXIS OF NAUSEA AND VOMITING
     Route: 048
     Dates: start: 20031008, end: 20031008
  9. EMEND [Suspect]
     Route: 048
     Dates: start: 20031009, end: 20031009
  10. ASPIRIN [Concomitant]
  11. CYTOXAN [Concomitant]
     Route: 042
     Dates: start: 20031008, end: 20031008
  12. DECADRON [Concomitant]
     Route: 042
     Dates: start: 20031008, end: 20031008
  13. ANZEMET [Concomitant]
     Route: 042
     Dates: start: 20031008, end: 20031008

REACTIONS (3)
  - CONFUSIONAL STATE [None]
  - OXYGEN SATURATION DECREASED [None]
  - PULMONARY OEDEMA [None]
